FAERS Safety Report 11599087 (Version 1)
Quarter: 2015Q4

REPORT INFORMATION
  Report Type: Spontaneous
  Country: US (occurrence: US)
  Receive Date: 20151006
  Receipt Date: 20151006
  Transmission Date: 20160304
  Serious: Yes (Other)
  Sender: FDA-Public Use
  Company Number: US-BAYER-2015-431034

PATIENT
  Age: 66 Year
  Sex: Male
  Weight: 92.97 kg

DRUGS (2)
  1. PHILLIPS^ LIQUID GELS STOOL SOFTENER [Suspect]
     Active Substance: DOCUSATE SODIUM
     Dosage: 3 DF, ONCE
     Route: 048
     Dates: start: 20150923
  2. ACETAMINOPHEN. [Concomitant]
     Active Substance: ACETAMINOPHEN
     Indication: ARTHRALGIA
     Dosage: 2 UNK, UNK

REACTIONS (7)
  - Gastrointestinal pain [Not Recovered/Not Resolved]
  - Anorectal discomfort [None]
  - Abdominal pain upper [None]
  - Urinary tract pain [None]
  - Abnormal faeces [Recovering/Resolving]
  - Hepatic pain [None]
  - Dysuria [Recovering/Resolving]

NARRATIVE: CASE EVENT DATE: 20150924
